FAERS Safety Report 14247071 (Version 3)
Quarter: 2018Q1

REPORT INFORMATION
  Report Type: Spontaneous
  Country: ES (occurrence: ES)
  Receive Date: 20171204
  Receipt Date: 20180201
  Transmission Date: 20180508
  Serious: Yes (Life-Threatening, Hospitalization, Other)
  Sender: FDA-Public Use
  Company Number: ES-BAUSCH-BL-2017-032675

PATIENT
  Age: 78 Year
  Sex: Female

DRUGS (10)
  1. LEVOFLOXACIN. [Suspect]
     Active Substance: LEVOFLOXACIN
     Indication: MENINGOENCEPHALITIS HERPETIC
     Dosage: 1ST DAY; 12 HOUR
     Route: 042
  2. ACICLOVIR [Suspect]
     Active Substance: ACYCLOVIR
     Indication: ENCEPHALITIS AUTOIMMUNE
     Dosage: EVERY 8 HOURS
     Route: 042
  3. LEVOFLOXACIN. [Suspect]
     Active Substance: LEVOFLOXACIN
     Dosage: 1 DAY
     Route: 042
  4. METHYLPREDNISOLONE. [Concomitant]
     Active Substance: METHYLPREDNISOLONE
     Indication: ENCEPHALITIS AUTOIMMUNE
     Dosage: PER 24 HOURS
     Route: 042
  5. SERTRALINE [Concomitant]
     Active Substance: SERTRALINE HYDROCHLORIDE
     Indication: DEPRESSION
     Route: 048
  6. LEVOFLOXACIN. [Suspect]
     Active Substance: LEVOFLOXACIN
     Dosage: NEXT 14 DAYS; 24 HOURS
     Route: 042
  7. INFLUENZA VACCINE [Concomitant]
     Active Substance: INFLUENZA VIRUS VACCINE
     Indication: PROPHYLAXIS
  8. PREDNISONE. [Concomitant]
     Active Substance: PREDNISONE
     Indication: ENCEPHALITIS AUTOIMMUNE
     Dosage: 24 HOURS
     Route: 048
  9. METHYLPREDNISOLONE. [Concomitant]
     Active Substance: METHYLPREDNISOLONE
     Dosage: PER 24 HOURS
     Route: 042
  10. ENOXAPARIN [Concomitant]
     Active Substance: ENOXAPARIN
     Indication: PRODUCT USED FOR UNKNOWN INDICATION
     Dosage: 24 HOURS
     Route: 058

REACTIONS (25)
  - Anaemia [Recovered/Resolved]
  - Nervous system disorder [Recovered/Resolved]
  - Speech disorder [Recovered/Resolved]
  - Movement disorder [Recovered/Resolved]
  - Pyrexia [Recovered/Resolved]
  - Factor XIII Inhibition [Recovered/Resolved]
  - Pancytopenia [Recovered/Resolved]
  - Coagulopathy [Recovered/Resolved]
  - Erythema [Recovered/Resolved]
  - Gait disturbance [Recovered/Resolved]
  - Peripheral swelling [Recovered/Resolved]
  - Aphasia [Recovered/Resolved]
  - Depression [Recovered/Resolved]
  - Partial seizures [Recovered/Resolved]
  - Muscle haemorrhage [Recovered/Resolved]
  - Hemiparesis [Recovered/Resolved]
  - Herpes simplex encephalitis [Recovered/Resolved]
  - Haemorrhagic disorder [Recovered/Resolved]
  - Disorientation [Recovered/Resolved]
  - Psychotic symptom [Recovered/Resolved]
  - Haemoglobin decreased [Recovered/Resolved]
  - Factor XIII deficiency [Recovered/Resolved]
  - Meningitis aseptic [Recovered/Resolved]
  - Condition aggravated [Recovered/Resolved]
  - Pleocytosis [Recovered/Resolved]

NARRATIVE: CASE EVENT DATE: 2016
